FAERS Safety Report 5410825-1 (Version None)
Quarter: 2007Q3

REPORT INFORMATION
  Report Type: 
  Country: None (occurrence: None)
  Receive Date: 20070810
  Receipt Date: 20070806
  Transmission Date: 20080115
  Serious: Yes (Hospitalization)
  Sender: FDA-Public Use
  Company Number: PHEH2007US09698

PATIENT
  Age: 41 Year
  Sex: Female
  Weight: 46.258 kg

DRUGS (4)
  1. ZELNORM [Suspect]
     Indication: GASTRIC HYPOMOTILITY
     Dosage: 6 MG, BID
     Route: 048
  2. REGLAN [Concomitant]
     Indication: NAUSEA
     Dosage: 10 MG, QID
     Route: 048
     Dates: start: 20061001
  3. CARAFATE [Concomitant]
     Indication: GASTRITIS
     Dosage: 1 G, TID
     Route: 048
     Dates: start: 20061001
  4. PROTONIX [Concomitant]
     Indication: REFLUX GASTRITIS
     Dosage: 40 MG, QD
     Route: 048
     Dates: start: 20061001

REACTIONS (5)
  - DEPRESSION [None]
  - DISEASE RECURRENCE [None]
  - FEELING ABNORMAL [None]
  - IMPAIRED GASTRIC EMPTYING [None]
  - MENTAL STATUS CHANGES [None]
